FAERS Safety Report 4303106-0 (Version None)
Quarter: 2004Q1

REPORT INFORMATION
  Report Type: 
  Country: None (occurrence: None)
  Receive Date: 20040224
  Receipt Date: 20040209
  Transmission Date: 20041129
  Serious: Yes (Hospitalization)
  Sender: FDA-Public Use
  Company Number: JP-ROCHE-358590

PATIENT
  Age: 17 Year
  Sex: Male
  Weight: 21 kg

DRUGS (5)
  1. TAMIFLU [Suspect]
     Route: 048
     Dates: start: 20040204, end: 20040206
  2. CLARITH [Concomitant]
     Indication: COUGH
     Route: 048
     Dates: start: 20040204, end: 20040209
  3. MEPTIN [Concomitant]
     Indication: COUGH
     Route: 048
     Dates: start: 20040204, end: 20040209
  4. MUCODYNE [Concomitant]
     Indication: COUGH
     Route: 048
     Dates: start: 20040204, end: 20040209
  5. BISOLVON [Concomitant]
     Indication: COUGH
     Route: 048
     Dates: start: 20040204, end: 20040209

REACTIONS (7)
  - ABNORMAL BEHAVIOUR [None]
  - DYSGRAPHIA [None]
  - ENCEPHALOPATHY [None]
  - FLATULENCE [None]
  - MEMORY IMPAIRMENT [None]
  - MENTAL IMPAIRMENT [None]
  - RESTLESSNESS [None]
